FAERS Safety Report 7229035-0 (Version None)
Quarter: 2011Q1

REPORT INFORMATION
  Report Type: 
  Country: None (occurrence: None)
  Receive Date: 20110117
  Receipt Date: 20110106
  Transmission Date: 20110831
  Serious: Yes (Hospitalization, Other)
  Sender: FDA-Public Use
  Company Number: PHHO2010JP05439

PATIENT
  Sex: Female
  Weight: 52 kg

DRUGS (4)
  1. DICLOFENAC SODIUM [Suspect]
     Indication: RHEUMATOID ARTHRITIS
     Dosage: UNK
     Route: 048
     Dates: start: 20100304
  2. PARIET [Suspect]
     Indication: PROPHYLAXIS AGAINST GASTROINTESTINAL ULCER
  3. PREDONINE [Suspect]
  4. RHEUMATREX [Concomitant]

REACTIONS (9)
  - PYREXIA [None]
  - GASTRECTOMY [None]
  - PERITONITIS [None]
  - ABDOMINAL CAVITY DRAINAGE [None]
  - GASTRIC ULCER PERFORATION [None]
  - HAEMATOCRIT DECREASED [None]
  - ABDOMINAL PAIN [None]
  - ABDOMINAL OPERATION [None]
  - HAEMOGLOBIN DECREASED [None]
